FAERS Safety Report 5511641-2 (Version None)
Quarter: 2007Q4

REPORT INFORMATION
  Report Type: 
  Country: None (occurrence: None)
  Receive Date: 20071109
  Receipt Date: 20071030
  Transmission Date: 20080405
  Serious: Yes (Life-Threatening, Hospitalization)
  Sender: FDA-Public Use
  Company Number: GB-PFIZER INC-2007029927

PATIENT
  Age: 60 Year
  Sex: Female
  Weight: 52 kg

DRUGS (5)
  1. LYRICA [Suspect]
     Indication: CHEST PAIN
     Route: 048
     Dates: end: 20051108
  2. LYRICA [Suspect]
     Indication: BACK PAIN
  3. BENDROFLUAZIDE [Concomitant]
     Route: 048
  4. PHENYTOIN [Concomitant]
     Route: 048
  5. ALBUTEROL [Concomitant]
     Route: 055

REACTIONS (1)
  - PNEUMONIA [None]
